FAERS Safety Report 8221002-3 (Version None)
Quarter: 2012Q1

REPORT INFORMATION
  Report Type: 
  Country: None (occurrence: None)
  Receive Date: 20120320
  Receipt Date: 20120312
  Transmission Date: 20120608
  Serious: Yes (Death, Other)
  Sender: FDA-Public Use
  Company Number: BR-GENZYME-FABR-1002388

PATIENT
  Sex: Male
  Weight: 50.5 kg

DRUGS (2)
  1. FABRAZYME [Suspect]
     Indication: FABRY'S DISEASE
     Dosage: 0.7 MG/KG, Q2W
     Route: 042
     Dates: start: 20090401, end: 20120229
  2. HYDANTOIN DERIVATIVES [Concomitant]
     Indication: CONVULSION
     Route: 065

REACTIONS (7)
  - SEPSIS [None]
  - BLOOD PARATHYROID HORMONE INCREASED [None]
  - HIP FRACTURE [None]
  - CARDIAC ARREST [None]
  - CONVULSION [None]
  - OSTEOMYELITIS CHRONIC [None]
  - INFECTED SKIN ULCER [None]
